FAERS Safety Report 14587752 (Version 1)
Quarter: 2018Q1

REPORT INFORMATION
  Report Type: Spontaneous
  Country: US (occurrence: US)
  Receive Date: 20180301
  Receipt Date: 20180301
  Transmission Date: 20180509
  Serious: Yes (Other)
  Sender: FDA-Public Use
  Company Number: US-BAYER-2018-036934

PATIENT
  Sex: Female

DRUGS (2)
  1. MIRENA [Suspect]
     Active Substance: LEVONORGESTREL
     Dosage: 20 MCG/24HR, CONT
     Route: 015
  2. MIRENA [Suspect]
     Active Substance: LEVONORGESTREL

REACTIONS (10)
  - Uterine perforation [Recovered/Resolved with Sequelae]
  - Depression [None]
  - Vision blurred [None]
  - Emotional distress [None]
  - Pelvic pain [Recovered/Resolved with Sequelae]
  - Angina pectoris [None]
  - Headache [None]
  - Weight increased [None]
  - Loss of libido [None]
  - Dizziness [None]
